FAERS Safety Report 5871415-X (Version None)
Quarter: 2008Q3

REPORT INFORMATION
  Report Type: 
  Country: None (occurrence: None)
  Receive Date: 20080905
  Receipt Date: 20080118
  Transmission Date: 20090109
  Serious: No
  Sender: FDA-Public Use
  Company Number: A0704122A

PATIENT

DRUGS (1)
  1. REQUIP [Suspect]
     Indication: DRUG USE FOR UNKNOWN INDICATION
     Route: 048
     Dates: end: 20080116

REACTIONS (1)
  - COUGH [None]
